FAERS Safety Report 5254645-X (Version None)
Quarter: 2007Q1

REPORT INFORMATION
  Report Type: 
  Country: None (occurrence: None)
  Receive Date: 20070302
  Receipt Date: 20070222
  Transmission Date: 20070707
  Serious: Yes (Hospitalization)
  Sender: FDA-Public Use
  Company Number: US-ABBOTT-07P-163-0360595-00

PATIENT
  Age: 47 Year
  Sex: Male

DRUGS (5)
  1. RITONAVIR SOFT GELATIN CAPSULES [Suspect]
     Indication: HIV INFECTION
     Route: 048
     Dates: start: 20060801
  2. APTIVUS [Suspect]
     Indication: HIV INFECTION
     Dosage: 2 CAPSULES, BID
     Route: 048
     Dates: start: 20060101
  3. TRUVADA [Concomitant]
     Indication: DRUG USE FOR UNKNOWN INDICATION
  4. FUZEON [Concomitant]
     Indication: DRUG USE FOR UNKNOWN INDICATION
  5. PREZISTA [Concomitant]
     Indication: DRUG USE FOR UNKNOWN INDICATION

REACTIONS (1)
  - HEPATITIS B [None]
